FAERS Safety Report 23912367 (Version 5)
Quarter: 2025Q1

REPORT INFORMATION
  Report Type: Spontaneous
  Country: US (occurrence: US)
  Receive Date: 20240528
  Receipt Date: 20250318
  Transmission Date: 20250409
  Serious: No
  Sender: THERATECHNOLOGIES
  Company Number: US-THERATECHNOLOGIES INC.-2024-THE-TES-000075

PATIENT

DRUGS (1)
  1. EGRIFTA SV [Suspect]
     Active Substance: TESAMORELIN ACETATE
     Indication: Lipodystrophy acquired
     Dosage: 1.4 MG (0.35 ML), QD
     Route: 058
     Dates: start: 20240212, end: 202412

REACTIONS (7)
  - Visual impairment [Unknown]
  - Treatment noncompliance [Unknown]
  - Diarrhoea [Not Recovered/Not Resolved]
  - Frequent bowel movements [Recovered/Resolved]
  - Infection [Not Recovered/Not Resolved]
  - Injection site pruritus [Unknown]
  - Injection site erythema [Unknown]

NARRATIVE: CASE EVENT DATE: 20240415
